FAERS Safety Report 14262698 (Version 1)
Quarter: 2017Q4

REPORT INFORMATION
  Report Type: Spontaneous
  Country: PE (occurrence: PE)
  Receive Date: 20171208
  Receipt Date: 20171208
  Transmission Date: 20180321
  Serious: Yes (Other)
  Sender: FDA-Public Use
  Company Number: PE-GLAXOSMITHKLINE-PE2017GSK186181

PATIENT
  Age: 21 Year
  Sex: Female

DRUGS (1)
  1. INDOXYL GEL (BENZOYL PEROXIDE CLINDAMYCIN) [Suspect]
     Active Substance: BENZOYL PEROXIDE\CLINDAMYCIN PHOSPHATE
     Indication: ACNE
     Dosage: UNK UNK, U
     Route: 061
     Dates: start: 201706

REACTIONS (2)
  - General physical health deterioration [Recovering/Resolving]
  - Pneumonia [Recovering/Resolving]

NARRATIVE: CASE EVENT DATE: 201710
